FAERS Safety Report 4536996-7 (Version None)
Quarter: 2004Q4

REPORT INFORMATION
  Report Type: 
  Country: None (occurrence: None)
  Receive Date: 20041220
  Receipt Date: 20041215
  Transmission Date: 20050328
  Serious: Yes (Death)
  Sender: FDA-Public Use
  Company Number: 2004-122922-NL

PATIENT
  Age: 65 Year
  Sex: 0

DRUGS (5)
  1. MIRTAZAPINE [Suspect]
     Indication: DEPRESSION
     Dosage: 15 MG/30 MG
     Dates: start: 20041106, end: 20041115
  2. MIRTAZAPINE [Suspect]
     Indication: DEPRESSION
     Dosage: 15 MG/30 MG
     Dates: start: 20041115
  3. DIAZEPAM [Concomitant]
  4. DOXEPIN [Concomitant]
  5. RAMIPRIL [Concomitant]

REACTIONS (1)
  - COMPLETED SUICIDE [None]
